FAERS Safety Report 22206156 (Version 1)
Quarter: 2023Q2

REPORT INFORMATION
  Report Type: Spontaneous
  Country: US (occurrence: None)
  Receive Date: 20230412
  Receipt Date: 20230412
  Transmission Date: 20230721
  Serious: No
  Sender: FDA-Public Use
  Company Number: None

PATIENT
  Sex: Female
  Weight: 76.5 kg

DRUGS (4)
  1. DEXTROAMPHET SACCHARAT, AMPHET ASPARTATE, DEXTROAMPHET SULFATE AND AMP [Suspect]
     Active Substance: AMPHETAMINE ASPARTATE\AMPHETAMINE ASPARTATE MONOHYDRATE\AMPHETAMINE SULFATE\DEXTROAMPHETAMINE SACCHA
     Indication: Attention deficit hyperactivity disorder
     Dosage: 30 CAPSULES ORAL?
     Route: 048
     Dates: start: 20230304
  2. DEXTROAMPHET SACCHARAT, AMPHET ASPARTATE, DEXTROAMPHET SULFATE AND AMP [Suspect]
     Active Substance: AMPHETAMINE ASPARTATE\AMPHETAMINE ASPARTATE MONOHYDRATE\AMPHETAMINE SULFATE\DEXTROAMPHETAMINE SACCHA
     Indication: Attention deficit hyperactivity disorder
  3. adderall 15mg XR [Concomitant]
  4. adderall 10mg IR [Concomitant]

REACTIONS (17)
  - Drug ineffective [None]
  - Asthenia [None]
  - Memory impairment [None]
  - Memory impairment [None]
  - Confusional state [None]
  - Social avoidant behaviour [None]
  - Disturbance in attention [None]
  - Aphasia [None]
  - Feeling jittery [None]
  - Anxiety [None]
  - Anxiety [None]
  - Nausea [None]
  - Mobility decreased [None]
  - Vision blurred [None]
  - Feeling abnormal [None]
  - Headache [None]
  - Abnormal behaviour [None]
